FAERS Safety Report 7758209-5 (Version None)
Quarter: 2011Q3

REPORT INFORMATION
  Report Type: 
  Country: None (occurrence: None)
  Receive Date: 20110919
  Receipt Date: 20110913
  Transmission Date: 20111222
  Serious: Yes (Other)
  Sender: FDA-Public Use
  Company Number: US-SP-2011-08631

PATIENT
  Sex: Female

DRUGS (1)
  1. TUBERSOL [Suspect]
     Indication: TUBERCULIN TEST
     Route: 065
     Dates: start: 20110912, end: 20110912

REACTIONS (4)
  - SWOLLEN TONGUE [None]
  - ERYTHEMA [None]
  - PRURITUS [None]
  - INJECTION SITE PAIN [None]
